FAERS Safety Report 9895226 (Version 2)
Quarter: 2014Q1

REPORT INFORMATION
  Report Type: Report from Study
  Country: US (occurrence: US)
  Receive Date: 20140213
  Receipt Date: 20140213
  Transmission Date: 20141002
  Serious: Yes (Hospitalization)
  Sender: FDA-Public Use
  Company Number: US-SA-2013SA107417

PATIENT
  Age: 50 Year
  Sex: Female

DRUGS (1)
  1. AUBAGIO [Suspect]
     Indication: MULTIPLE SCLEROSIS
     Route: 048
     Dates: start: 20130903

REACTIONS (8)
  - Fall [Unknown]
  - Dry skin [Unknown]
  - Hair colour changes [Unknown]
  - Alopecia [Unknown]
  - Diarrhoea [Unknown]
  - Hypoaesthesia [Unknown]
  - Thrombosis [Unknown]
  - Pneumonia [Unknown]
